FAERS Safety Report 9304005 (Version 1)
Quarter: 2013Q2

REPORT INFORMATION
  Report Type: Spontaneous
  Country: KR (occurrence: KR)
  Receive Date: 20130522
  Receipt Date: 20130522
  Transmission Date: 20140414
  Serious: Yes (Hospitalization)
  Sender: FDA-Public Use
  Company Number: PHHY2013KR050115

PATIENT
  Age: 58 Year
  Sex: Male

DRUGS (1)
  1. LEVOFLOXACIN [Suspect]
     Indication: PYREXIA
     Dosage: 250 MG
     Route: 048

REACTIONS (9)
  - Anaphylactic reaction [Unknown]
  - Herpes virus infection [Unknown]
  - Dizziness [Unknown]
  - Rash [Unknown]
  - Asthma [Unknown]
  - Dyspnoea [Unknown]
  - Papule [Unknown]
  - Erythema [Unknown]
  - Lip blister [Unknown]
